FAERS Safety Report 12953534 (Version 1)
Quarter: 2016Q4

REPORT INFORMATION
  Report Type: Spontaneous
  Country: US (occurrence: US)
  Receive Date: 20161118
  Receipt Date: 20161118
  Transmission Date: 20170207
  Serious: No
  Sender: FDA-Public Use
  Company Number: US-AMGEN-USASP2016155330

PATIENT
  Age: 37 Year
  Sex: Female

DRUGS (15)
  1. IBUPROFEN. [Concomitant]
     Active Substance: IBUPROFEN
     Indication: OCULAR HYPERAEMIA
  2. PREDNISONE. [Concomitant]
     Active Substance: PREDNISONE
     Indication: PHOTOPHOBIA
  3. ENBREL [Suspect]
     Active Substance: ETANERCEPT
     Indication: ANKYLOSING SPONDYLITIS
     Dosage: 50 MG, QWK
     Route: 065
  4. PREDNISONE. [Concomitant]
     Active Substance: PREDNISONE
     Indication: OCULAR HYPERAEMIA
  5. PREDNISONE. [Concomitant]
     Active Substance: PREDNISONE
     Indication: MUSCULOSKELETAL PAIN
  6. PREDNISONE. [Concomitant]
     Active Substance: PREDNISONE
     Indication: EYE INFLAMMATION
  7. IBUPROFEN. [Concomitant]
     Active Substance: IBUPROFEN
     Indication: EYE INFLAMMATION
  8. IBUPROFEN. [Concomitant]
     Active Substance: IBUPROFEN
     Indication: EYE DISORDER
  9. IBUPROFEN. [Concomitant]
     Active Substance: IBUPROFEN
     Indication: MUSCULOSKELETAL PAIN
  10. PREDNISONE. [Concomitant]
     Active Substance: PREDNISONE
     Indication: EYE PAIN
     Dosage: UNK
  11. PREDNISONE. [Concomitant]
     Active Substance: PREDNISONE
     Indication: EYE DISORDER
  12. PREDNISONE. [Concomitant]
     Active Substance: PREDNISONE
     Indication: ARTHRALGIA
  13. IBUPROFEN. [Concomitant]
     Active Substance: IBUPROFEN
     Indication: EYE PAIN
     Dosage: UNK
  14. IBUPROFEN. [Concomitant]
     Active Substance: IBUPROFEN
     Indication: ARTHRALGIA
  15. IBUPROFEN. [Concomitant]
     Active Substance: IBUPROFEN
     Indication: PHOTOPHOBIA

REACTIONS (9)
  - Photophobia [Recovering/Resolving]
  - Eye pain [Recovering/Resolving]
  - Feeling cold [Recovering/Resolving]
  - Eye inflammation [Recovering/Resolving]
  - Eye disorder [Recovering/Resolving]
  - Musculoskeletal pain [Unknown]
  - Arthralgia [Unknown]
  - Ocular hyperaemia [Recovering/Resolving]
  - Oropharyngeal pain [Unknown]

NARRATIVE: CASE EVENT DATE: 20161027
